FAERS Safety Report 5391914-7 (Version None)
Quarter: 2007Q3

REPORT INFORMATION
  Report Type: 
  Country: None (occurrence: None)
  Receive Date: 20070720
  Receipt Date: 20070711
  Transmission Date: 20080115
  Serious: Yes (Death, Other)
  Sender: FDA-Public Use
  Company Number: GB-JNJFOC-20070702371

PATIENT
  Sex: Male
  Weight: 80 kg

DRUGS (8)
  1. REMICADE [Suspect]
     Indication: RHEUMATOID ARTHRITIS
     Route: 042
  2. SULFASALAZINE [Concomitant]
  3. PREDNISOLONE [Concomitant]
  4. AMITRIPTYLINE HCL [Concomitant]
  5. DOCUSATE SODIUM [Concomitant]
  6. LANSOPRAZOLE [Concomitant]
  7. NITRAZEPAM [Concomitant]
  8. ROFECOXIB [Concomitant]

REACTIONS (1)
  - DRUG TOXICITY [None]
